FAERS Safety Report 5923033-2 (Version None)
Quarter: 2008Q4

REPORT INFORMATION
  Report Type: 
  Country: None (occurrence: None)
  Receive Date: 20081018
  Receipt Date: 20081006
  Transmission Date: 20090506
  Serious: Yes (Hospitalization, Other)
  Sender: FDA-Public Use
  Company Number: DE-PFIZER INC-2008081033

PATIENT
  Sex: Female
  Weight: 70 kg

DRUGS (1)
  1. LYRICA [Suspect]
     Indication: FIBROMYALGIA
     Dates: end: 20080201

REACTIONS (3)
  - DEPRESSION [None]
  - PSYCHOGENIC PAIN DISORDER [None]
  - SUICIDE ATTEMPT [None]
